FAERS Safety Report 18911055 (Version 2)
Quarter: 2021Q1

REPORT INFORMATION
  Report Type: Spontaneous
  Country: US (occurrence: US)
  Receive Date: 20210218
  Receipt Date: 20210302
  Transmission Date: 20210420
  Serious: Yes (Hospitalization)
  Sender: FDA-Public Use
  Company Number: US-INDIVIOR EUROPE LIMITED-INDV-128479-2021

PATIENT

DRUGS (1)
  1. SUBOXONE [Suspect]
     Active Substance: BUPRENORPHINE HYDROCHLORIDE\NALOXONE HYDROCHLORIDE
     Indication: PAIN
     Dosage: 8 MILLIGRAM, QID
     Route: 060
     Dates: start: 201702

REACTIONS (5)
  - Functional gastrointestinal disorder [Recovered/Resolved]
  - Inappropriate schedule of product administration [Unknown]
  - Prescribed overdose [Unknown]
  - Off label use [Unknown]
  - Incisional hernia [Unknown]

NARRATIVE: CASE EVENT DATE: 201702
